FAERS Safety Report 5428373-1 (Version None)
Quarter: 2007Q3

REPORT INFORMATION
  Report Type: 
  Country: None (occurrence: None)
  Receive Date: 20070824
  Receipt Date: 20070816
  Transmission Date: 20080115
  Serious: Yes (Other)
  Sender: FDA-Public Use
  Company Number: 2007SP016677

PATIENT
  Sex: Male

DRUGS (1)
  1. INTRON A [Suspect]
     Indication: MALIGNANT MELANOMA

REACTIONS (1)
  - JOINT DISLOCATION [None]
